FAERS Safety Report 4605165-4 (Version None)
Quarter: 2005Q1

REPORT INFORMATION
  Report Type: 
  Country: None (occurrence: None)
  Receive Date: 20050217
  Receipt Date: 20041108
  Transmission Date: 20050727
  Serious: No
  Sender: FDA-Public Use
  Company Number: S04-USA-07429-01

PATIENT
  Age: 80 Year
  Sex: Male

DRUGS (2)
  1. NAMENDA [Suspect]
     Dosage: 5 MG QD PO
     Route: 048
  2. EXELON [Concomitant]

REACTIONS (1)
  - URINARY RETENTION [None]
